FAERS Safety Report 4991136-5 (Version None)
Quarter: 2006Q1

REPORT INFORMATION
  Report Type: 
  Country: None (occurrence: None)
  Receive Date: 20060314
  Receipt Date: 20051213
  Transmission Date: 20060701
  Serious: No
  Sender: FDA-Public Use
  Company Number: 2005-02563

PATIENT
  Age: 60 Year
  Sex: Male
  Weight: 85.6 kg

DRUGS (4)
  1. VELCADE [Suspect]
     Indication: MULTIPLE MYELOMA
     Dosage: INTRAVENOUS
     Route: 042
     Dates: start: 20041101, end: 20050401
  2. NEURONTIN [Suspect]
     Indication: NEUROPATHY PERIPHERAL
     Dosage: 1800.00 MG, QD, ORAL; 300.00 MG, BID, ORAL
     Route: 048
     Dates: start: 20051001, end: 20050101
  3. NEURONTIN [Suspect]
     Indication: NEUROPATHY PERIPHERAL
     Dosage: 1800.00 MG, QD, ORAL; 300.00 MG, BID, ORAL
     Route: 048
     Dates: start: 20050101
  4. ZOMETA [Concomitant]

REACTIONS (2)
  - BLOOD COUNT ABNORMAL [None]
  - NEUROPATHY PERIPHERAL [None]
